FAERS Safety Report 16503709 (Version 4)
Quarter: 2019Q3

REPORT INFORMATION
  Report Type: Spontaneous
  Country: US (occurrence: US)
  Receive Date: 20190701
  Receipt Date: 20190830
  Transmission Date: 20191004
  Serious: No
  Sender: FDA-Public Use
  Company Number: US-PFIZER INC-2019268743

PATIENT
  Age: 67 Year
  Sex: Female
  Weight: 53.52 kg

DRUGS (3)
  1. RELPAX [Suspect]
     Active Substance: ELETRIPTAN HYDROBROMIDE
     Indication: MIGRAINE
     Dosage: UNK
  2. ELETRIPTAN HBR [Suspect]
     Active Substance: ELETRIPTAN HYDROBROMIDE
     Indication: MIGRAINE
     Dosage: 40 MG, AS NEEDED
     Route: 048
     Dates: start: 20190618, end: 20190618
  3. ELETRIPTAN HBR [Suspect]
     Active Substance: ELETRIPTAN HYDROBROMIDE
     Dosage: 1 DF, UNK

REACTIONS (8)
  - Feeling abnormal [Not Recovered/Not Resolved]
  - Product administration error [Unknown]
  - Nausea [Recovering/Resolving]
  - Drug ineffective [Unknown]
  - Product dispensing error [Unknown]
  - Malaise [Unknown]
  - Dizziness [Recovering/Resolving]
  - Social avoidant behaviour [Unknown]

NARRATIVE: CASE EVENT DATE: 201906
